FAERS Safety Report 6719960-9 (Version None)
Quarter: 2010Q2

REPORT INFORMATION
  Report Type: 
  Country: None (occurrence: None)
  Receive Date: 20100511
  Receipt Date: 20100107
  Transmission Date: 20101027
  Serious: Yes (Other)
  Sender: FDA-Public Use
  Company Number: TW-BAYER-201023618GPV

PATIENT
  Age: 72 Year
  Sex: Male

DRUGS (4)
  1. SORAFENIB [Suspect]
     Indication: HEPATIC NEOPLASM MALIGNANT
     Dates: start: 20090326, end: 20090730
  2. CRAD00102101 VS PLACEBO [Suspect]
     Indication: HEPATIC NEOPLASM MALIGNANT
     Dates: start: 20090326, end: 20090730
  3. TRANEXAMIC ACID [Concomitant]
     Dosage: TOTAL DAILY DOSE: 1000 MG
     Route: 048
  4. LORAZEPAM [Concomitant]

REACTIONS (3)
  - ALANINE AMINOTRANSFERASE INCREASED [None]
  - ASPARTATE AMINOTRANSFERASE INCREASED [None]
  - HEPATITIS C [None]
